FAERS Safety Report 11984769 (Version 1)
Quarter: 2016Q1

REPORT INFORMATION
  Report Type: Spontaneous
  Country: TW (occurrence: TW)
  Receive Date: 20160201
  Receipt Date: 20160201
  Transmission Date: 20160526
  Serious: Yes (Hospitalization, Other)
  Sender: FDA-Public Use
  Company Number: TW-VALIDUS PHARMACEUTICALS LLC-TW-2016VAL000099

PATIENT
  Age: 60 Year
  Sex: Female

DRUGS (6)
  1. QUETIAPINE [Suspect]
     Active Substance: QUETIAPINE
     Dosage: 200 MG, DAILY
     Dates: start: 201501
  2. QUETIAPINE [Suspect]
     Active Substance: QUETIAPINE
     Dosage: 100 MG, DAILY
     Dates: start: 2015
  3. QUETIAPINE [Suspect]
     Active Substance: QUETIAPINE
     Indication: SCHIZOPHRENIA
     Dosage: 925 MG, DAILY
     Dates: start: 2014
  4. QUETIAPINE [Suspect]
     Active Substance: QUETIAPINE
     Dosage: 150 MG, DAILY
     Dates: start: 2015
  5. CARBAMAZEPINE. [Suspect]
     Active Substance: CARBAMAZEPINE
     Indication: SCHIZOPHRENIA
     Dosage: 600 MG, DAILY
     Dates: start: 2014
  6. CARBAMAZEPINE. [Suspect]
     Active Substance: CARBAMAZEPINE
     Dosage: 400 MG, DAILY
     Dates: start: 201501

REACTIONS (24)
  - Neuroleptic malignant syndrome [Recovered/Resolved]
  - Hypophagia [Recovered/Resolved]
  - Pyrexia [Recovered/Resolved]
  - Hyperthermia [Recovered/Resolved]
  - Tachycardia [Recovered/Resolved]
  - Urinary tract infection [Recovering/Resolving]
  - Stupor [Recovered/Resolved]
  - Hyperhidrosis [Recovered/Resolved]
  - Upper respiratory tract infection [Recovering/Resolving]
  - Depressed mood [Unknown]
  - Muscle rigidity [Recovered/Resolved]
  - Staring [Recovered/Resolved]
  - Myoglobin blood increased [Recovered/Resolved]
  - White blood cell count increased [Recovered/Resolved]
  - Pneumonia [Unknown]
  - Stereotypy [Recovered/Resolved]
  - Blood creatine phosphokinase increased [Recovered/Resolved]
  - Catatonia [Unknown]
  - Mutism [Recovered/Resolved]
  - Negativism [Recovered/Resolved]
  - Pyuria [Unknown]
  - Dysuria [Recovered/Resolved]
  - Hypertension [Recovered/Resolved]
  - Autonomic nervous system imbalance [Recovered/Resolved]

NARRATIVE: CASE EVENT DATE: 2015
